FAERS Safety Report 5515693-5 (Version None)
Quarter: 2007Q4

REPORT INFORMATION
  Report Type: 
  Country: None (occurrence: None)
  Receive Date: 20071113
  Receipt Date: 20070828
  Transmission Date: 20080405
  Serious: No
  Sender: FDA-Public Use
  Company Number: A0677030A

PATIENT
  Age: 69 Year
  Sex: Female

DRUGS (3)
  1. COREG [Suspect]
     Indication: HYPERTENSION
     Dosage: 6.25MG TWICE PER DAY
     Route: 048
     Dates: start: 20070101, end: 20070828
  2. BENICAR [Concomitant]
  3. COUMADIN [Concomitant]

REACTIONS (1)
  - FATIGUE [None]
